FAERS Safety Report 6812822-8 (Version None)
Quarter: 2010Q3

REPORT INFORMATION
  Report Type: 
  Country: None (occurrence: None)
  Receive Date: 20100701
  Receipt Date: 20100623
  Transmission Date: 20110219
  Serious: Yes (Other)
  Sender: FDA-Public Use
  Company Number: US-ROCHE-711737

PATIENT
  Age: 52 Year
  Sex: Female

DRUGS (7)
  1. XELODA [Suspect]
     Indication: BREAST CANCER
     Dosage: TWO WEEKS ON AND ONE WEEK OFF
     Route: 048
     Dates: start: 20061016, end: 20070415
  2. XELODA [Suspect]
     Dosage: ONE WEEK OFF AND ONE WEEK ON
     Route: 048
     Dates: start: 20071126, end: 20080603
  3. AVASTIN [Suspect]
     Indication: BREAST CANCER
     Dosage: TTAL FIVE DOSES
     Route: 065
     Dates: start: 20080619, end: 20080910
  4. IXEMPRA KIT [Suspect]
     Indication: BREAST CANCER
     Dosage: A SINGLE DOSE
     Route: 065
     Dates: start: 20080618, end: 20080618
  5. NAVELBINE [Suspect]
     Indication: BREAST CANCER
     Route: 065
     Dates: start: 20080814
  6. DIETHYL-STILBESTROL TAB [Concomitant]
     Indication: BREAST CANCER
     Route: 065
     Dates: start: 20070418, end: 20070617
  7. ESTRADIOL VALERATE [Concomitant]
     Dates: start: 20080821

REACTIONS (5)
  - DECREASED APPETITE [None]
  - DIARRHOEA [None]
  - DRUG RESISTANCE [None]
  - MALIGNANT NEOPLASM PROGRESSION [None]
  - NAUSEA [None]
